FAERS Safety Report 8431428-0 (Version None)
Quarter: 2012Q2

REPORT INFORMATION
  Report Type: 
  Country: None (occurrence: None)
  Receive Date: 20120607
  Receipt Date: 20120607
  Transmission Date: 20120825
  Serious: Yes (Disabling, Other)
  Sender: FDA-Public Use
  Company Number: None

PATIENT
  Sex: Female
  Weight: 68.9467 kg

DRUGS (1)
  1. SYNVISC - ONE 48MM GENZYME CORPORATION [Suspect]
     Indication: OSTEOPOROSIS
     Dosage: 48 MM 1 KNEE INJECTION
     Dates: start: 20120426

REACTIONS (3)
  - PAIN IN EXTREMITY [None]
  - BURNING SENSATION [None]
  - MYALGIA [None]
